FAERS Safety Report 5305825-6 (Version None)
Quarter: 2007Q2

REPORT INFORMATION
  Report Type: 
  Country: None (occurrence: None)
  Receive Date: 20070424
  Receipt Date: 20070413
  Transmission Date: 20071010
  Serious: Yes (Hospitalization)
  Sender: FDA-Public Use
  Company Number: HQWYE566213APR07

PATIENT
  Age: 47 Year
  Sex: Male
  Weight: 96.6 kg

DRUGS (3)
  1. MYLOTARG [Suspect]
     Indication: ACUTE MYELOID LEUKAEMIA
     Dosage: 12.6 MG TOTAL DOSE ADMINISTERED
     Route: 042
     Dates: start: 20070316, end: 20070316
  2. DAUNORUBICIN HCL [Suspect]
     Indication: ACUTE MYELOID LEUKAEMIA
     Dosage: 283.5 MG TOTAL DOSE ADMINISTERED
     Route: 042
     Dates: start: 20070313, end: 20070315
  3. CYTARABINE [Suspect]
     Indication: ACUTE MYELOID LEUKAEMIA
     Dosage: 1470 MG TOTAL DOSE ADMINISTERED
     Route: 042
     Dates: start: 20070313, end: 20070319

REACTIONS (1)
  - MYOCARDIAL INFARCTION [None]
